FAERS Safety Report 26045031 (Version 1)
Quarter: 2025Q4

REPORT INFORMATION
  Report Type: Spontaneous
  Country: US (occurrence: US)
  Receive Date: 20251114
  Receipt Date: 20251114
  Transmission Date: 20260118
  Serious: Yes (Other)
  Sender: JOHNSON AND JOHNSON
  Company Number: US-JNJFOC-20251148664

PATIENT
  Sex: Female

DRUGS (3)
  1. SPRAVATO [Suspect]
     Active Substance: ESKETAMINE
     Indication: Depression
     Dosage: ?84 MG, 58 TOTAL DOSES?
     Route: 045
     Dates: start: 20241011, end: 20251023
  2. SPRAVATO [Suspect]
     Active Substance: ESKETAMINE
     Indication: Major depression
  3. SERTRALINE [Concomitant]
     Active Substance: SERTRALINE HYDROCHLORIDE
     Indication: Product used for unknown indication

REACTIONS (2)
  - Cerebral haemorrhage [Unknown]
  - Suicidal ideation [Unknown]
